FAERS Safety Report 7301013-2 (Version None)
Quarter: 2011Q1

REPORT INFORMATION
  Report Type: 
  Country: None (occurrence: None)
  Receive Date: 20110111
  Receipt Date: 20100831
  Transmission Date: 20110831
  Serious: Yes (Other)
  Sender: FDA-Public Use
  Company Number: 2010BH022547

PATIENT
  Age: 51 Year
  Sex: Female

DRUGS (43)
  1. HALOPERIDOL [Concomitant]
  2. DEXTROSE [Concomitant]
  3. VANCOMYCIN HCL [Suspect]
     Indication: STAPHYLOCOCCAL INFECTION
     Dosage: 2 GM; 2X A DAY; IV, 1250 MG; IV, 1 GM; IV
     Route: 042
     Dates: start: 20100830, end: 20100830
  4. VANCOMYCIN HCL [Suspect]
     Indication: STAPHYLOCOCCAL INFECTION
     Dosage: 2 GM; 2X A DAY; IV, 1250 MG; IV, 1 GM; IV
     Route: 042
     Dates: start: 20100828
  5. VANCOMYCIN HCL [Suspect]
     Indication: STAPHYLOCOCCAL INFECTION
     Dosage: 2 GM; 2X A DAY; IV, 1250 MG; IV, 1 GM; IV
     Route: 042
     Dates: start: 20100827
  6. ALBUTEROL [Concomitant]
  7. NALBUPHINE [Concomitant]
  8. SODIUM CHLORIDE [Concomitant]
  9. SIMVASTATIN [Concomitant]
  10. DOCUSATE SODIUM [Concomitant]
  11. DEXAMETHASONE [Concomitant]
  12. KETOROLAC [Concomitant]
  13. SODIUM CHLORIDE [Concomitant]
  14. BETAMETHASONE DIPROPIONATE [Concomitant]
  15. PIPERACILLIN AND TAZOBACTAM [Concomitant]
  16. NITROSTAT [Concomitant]
  17. AMBIEN [Concomitant]
  18. INFUSION [Concomitant]
  19. CALCIUM CARBONATE [Concomitant]
  20. CALCIUM GLUCONATE [Concomitant]
  21. NORCO [Concomitant]
  22. BISACODYL [Concomitant]
  23. DOCUSATE SODIUM W/SENNA [Concomitant]
  24. FUROSEMIDE [Concomitant]
  25. POTASSIUM CHLORIDE [Concomitant]
  26. FAMOTIDINE [Concomitant]
  27. NOVOLIN R [Concomitant]
  28. ACETAMINOPHEN [Concomitant]
  29. ATROPINE SULFATE [Concomitant]
  30. ONDANSETRON [Concomitant]
  31. LACTOBACILLUS ACIDOPHILUS [Concomitant]
  32. NALOXONE [Concomitant]
  33. EPINEPHRINE [Concomitant]
  34. LORAZEPAM [Concomitant]
  35. MAGNESIUM SULFATE [Concomitant]
  36. POTASSIUM CHLORIDE [Concomitant]
  37. PROPOFOL [Concomitant]
  38. FENOFIBRATE [Concomitant]
  39. PIPERACILLIN AND TAZOBACTAM [Concomitant]
  40. TRAVOPROST [Concomitant]
  41. MIDAZOLAM HCL [Concomitant]
  42. MORPHINE [Concomitant]
  43. ATIVAN [Concomitant]

REACTIONS (1)
  - BLOOD CREATININE INCREASED [None]
